FAERS Safety Report 18651935 (Version 1)
Quarter: 2020Q4

REPORT INFORMATION
  Report Type: Spontaneous
  Country: US (occurrence: US)
  Receive Date: 20201223
  Receipt Date: 20201223
  Transmission Date: 20210114
  Serious: Yes (Other)
  Sender: FDA-Public Use
  Company Number: US-PACIRA-2020000548

PATIENT
  Sex: Female

DRUGS (2)
  1. BUPIVACAINE 0.25% [Suspect]
     Active Substance: BUPIVACAINE
     Indication: NERVE BLOCK
     Dosage: 5ML + 10ML EXPAREL
     Route: 065
  2. EXPAREL [Suspect]
     Active Substance: BUPIVACAINE
     Indication: NERVE BLOCK
     Dosage: 10ML + 5ML BUPIVACIANE 0.25%
     Route: 065

REACTIONS (4)
  - Muscular weakness [Unknown]
  - Fall [Unknown]
  - Off label use [Unknown]
  - Wrist fracture [Unknown]

NARRATIVE: CASE EVENT DATE: 20201215
